FAERS Safety Report 16599072 (Version 1)
Quarter: 2019Q3

REPORT INFORMATION
  Report Type: Spontaneous
  Country: FR (occurrence: FR)
  Receive Date: 20190719
  Receipt Date: 20190719
  Transmission Date: 20191004
  Serious: Yes (Hospitalization)
  Sender: FDA-Public Use
  Company Number: FR-009507513-1907FRA005237

PATIENT
  Age: 26 Year
  Sex: Female
  Weight: 101 kg

DRUGS (1)
  1. CELESTENE CHRONODOSE [Suspect]
     Active Substance: BETAMETHASONE
     Indication: NEONATAL RESPIRATORY DISTRESS SYNDROME
     Dosage: 1 DOSAGE FORM, ONCE
     Route: 042
     Dates: start: 20180516

REACTIONS (2)
  - Adrenal cortex necrosis [Not Recovered/Not Resolved]
  - Adrenal haematoma [Recovered/Resolved with Sequelae]

NARRATIVE: CASE EVENT DATE: 201805
